FAERS Safety Report 4690795-4 (Version None)
Quarter: 2005Q2

REPORT INFORMATION
  Report Type: 
  Country: None (occurrence: None)
  Receive Date: 20050613
  Receipt Date: 20050530
  Transmission Date: 20051028
  Serious: Yes (Hospitalization)
  Sender: FDA-Public Use
  Company Number: 2005079137

PATIENT
  Age: 31 Year
  Sex: Male
  Weight: 73 kg

DRUGS (3)
  1. ATARAX [Suspect]
     Indication: URTICARIA
     Dosage: 75 MG (25 MG, 3 IN 1 D), ORAL
     Route: 048
     Dates: start: 20050401, end: 20050504
  2. TAVEGYL (CLEMASTINE) [Suspect]
     Indication: URTICARIA
     Dosage: 2 MG (1  MG, 2 IN 1 D), ORAL
     Route: 048
     Dates: start: 20050408, end: 20050504
  3. TALION              (BEPOTASTINE BESILATE) [Suspect]
     Indication: URTICARIA
     Dosage: 20 MG (10 MG, 3 IN 1 D), ORAL
     Route: 048
     Dates: start: 20050408, end: 20050504

REACTIONS (2)
  - TOXIC EPIDERMAL NECROLYSIS [None]
  - VIRAL INFECTION [None]
